FAERS Safety Report 11529779 (Version 2)
Quarter: 2016Q1

REPORT INFORMATION
  Report Type: Spontaneous
  Country: US (occurrence: US)
  Receive Date: 20150921
  Receipt Date: 20160113
  Transmission Date: 20160525
  Serious: No
  Sender: FDA-Public Use
  Company Number: US-009507513-1509USA010255

PATIENT
  Sex: Female

DRUGS (1)
  1. KEYTRUDA [Suspect]
     Active Substance: PEMBROLIZUMAB
     Indication: MALIGNANT MELANOMA STAGE IV
     Dosage: 3-4 DOSES/ Q3W
     Route: 042
     Dates: start: 201410, end: 201504

REACTIONS (3)
  - Peripheral swelling [Recovered/Resolved]
  - Arthralgia [Recovering/Resolving]
  - Joint contracture [Recovered/Resolved]
